FAERS Safety Report 16743166 (Version 1)
Quarter: 2019Q3

REPORT INFORMATION
  Report Type: Spontaneous
  Country: US (occurrence: US)
  Receive Date: 20190827
  Receipt Date: 20190827
  Transmission Date: 20191005
  Serious: No
  Sender: FDA-Public Use
  Company Number: US-GLAXOSMITHKLINE-US2019151303

PATIENT
  Age: 89 Year
  Sex: Female

DRUGS (1)
  1. ALBUTEROL SULFATE INHALATION POWDER [Suspect]
     Active Substance: ALBUTEROL SULFATE
     Indication: PRODUCT USED FOR UNKNOWN INDICATION
     Dosage: UNK
     Route: 065
     Dates: start: 20190816

REACTIONS (3)
  - Product dose omission [Unknown]
  - Wrong technique in device usage process [Unknown]
  - Underdose [Unknown]

NARRATIVE: CASE EVENT DATE: 201908
